FAERS Safety Report 24463223 (Version 1)
Quarter: 2024Q4

REPORT INFORMATION
  Report Type: Spontaneous
  Country: CN (occurrence: CN)
  Receive Date: 20241018
  Receipt Date: 20241018
  Transmission Date: 20250115
  Serious: Yes (Other)
  Sender: FRESENIUS KABI
  Company Number: CN-FreseniusKabi-FK202415541

PATIENT
  Age: 68 Year
  Sex: Male
  Weight: 60 kg

DRUGS (2)
  1. PROPOFOL [Suspect]
     Active Substance: PROPOFOL
     Indication: General anaesthesia
     Dosage: THERAPY START TIME: 13:52?FORM: INJECTION ?ROUTE: INTRAVENOUS INJECTION
     Dates: start: 20241007, end: 20241007
  2. PROPOFOL [Suspect]
     Active Substance: PROPOFOL
     Indication: Inguinal hernia

REACTIONS (1)
  - Papule [Recovered/Resolved]

NARRATIVE: CASE EVENT DATE: 20241007
